FAERS Safety Report 8216284-8 (Version None)
Quarter: 2012Q1

REPORT INFORMATION
  Report Type: 
  Country: None (occurrence: None)
  Receive Date: 20120316
  Receipt Date: 20120307
  Transmission Date: 20120608
  Serious: Yes (Other)
  Sender: FDA-Public Use
  Company Number: PHHY2012ES020343

PATIENT
  Age: 78 Year
  Sex: Male

DRUGS (1)
  1. ZOLEDRONOC ACID [Suspect]
     Indication: MULTIPLE MYELOMA
     Dosage: UNK UKN, UNK
     Route: 042

REACTIONS (6)
  - OSTEONECROSIS OF JAW [None]
  - OSTEOLYSIS [None]
  - FISTULA [None]
  - INFECTION [None]
  - PAIN IN JAW [None]
  - PATHOLOGICAL FRACTURE [None]
